FAERS Safety Report 20719964 (Version 1)
Quarter: 2022Q2

REPORT INFORMATION
  Report Type: Spontaneous
  Country: US (occurrence: US)
  Receive Date: 20220418
  Receipt Date: 20220418
  Transmission Date: 20220721
  Serious: Yes (Other)
  Sender: FDA-Public Use
  Company Number: US-PFIZER INC-202200543349

PATIENT
  Age: 73 Year
  Sex: Female
  Weight: 90.2 kg

DRUGS (3)
  1. GLUCOTROL XL [Suspect]
     Active Substance: GLIPIZIDE
     Indication: Cholelithiasis
     Dosage: 2 DF, DAILY (TAKE 2 TABLETS (20 MG PER DOSE)
     Route: 048
  2. ALDACTONE [Suspect]
     Active Substance: SPIRONOLACTONE
     Indication: Cholelithiasis
     Dosage: 25 MG, DAILY (1 TABLET (25 MG PER DOSE) BY MOUTH DAILY)
     Route: 048
  3. CALAN SR [Suspect]
     Active Substance: VERAPAMIL HYDROCHLORIDE
     Indication: Cholelithiasis
     Dosage: 1 DF, 2X/DAY (TAKE 1 TABLET BY MOUTH EVERY 12 HOURS)
     Route: 048

REACTIONS (3)
  - Rectal haemorrhage [Unknown]
  - Vomiting [Unknown]
  - Off label use [Unknown]
